FAERS Safety Report 5310410-6 (Version None)
Quarter: 2007Q2

REPORT INFORMATION
  Report Type: 
  Country: None (occurrence: None)
  Receive Date: 20070427
  Receipt Date: 20070417
  Transmission Date: 20071010
  Serious: Yes (Death, Life-Threatening, Hospitalization, Other)
  Sender: FDA-Public Use
  Company Number: GB-JNJFOC-20070401083

PATIENT
  Sex: Female
  Weight: 80 kg

DRUGS (9)
  1. REMICADE [Suspect]
     Indication: RHEUMATOID ARTHRITIS
     Route: 042
  2. PREDNISOLONE [Concomitant]
  3. ATENOLOL [Concomitant]
  4. FERROUS SULFATE TAB [Concomitant]
  5. FOLIC ACID [Concomitant]
  6. FRUSEMIDE [Concomitant]
  7. PERINDOPRIL [Concomitant]
  8. RISEDRONATE SODIUM [Concomitant]
  9. ZOTON [Concomitant]

REACTIONS (3)
  - ARTERIOSCLEROSIS CORONARY ARTERY [None]
  - BRONCHOPNEUMONIA [None]
  - POSTOPERATIVE WOUND INFECTION [None]
